FAERS Safety Report 7362298-X (Version None)
Quarter: 2011Q1

REPORT INFORMATION
  Report Type: 
  Country: None (occurrence: None)
  Receive Date: 20110318
  Receipt Date: 20110308
  Transmission Date: 20110831
  Serious: Yes (Hospitalization, Other)
  Sender: FDA-Public Use
  Company Number: US-JNJFOC-20090809326

PATIENT
  Sex: Female
  Weight: 40.5 kg

DRUGS (2)
  1. INFLIXIMAB [Suspect]
     Indication: COLITIS ULCERATIVE
     Route: 042
     Dates: start: 20060912, end: 20080806
  2. LOPERAMIDE [Concomitant]

REACTIONS (5)
  - COLOSTOMY CLOSURE [None]
  - COLITIS ULCERATIVE [None]
  - DEHYDRATION [None]
  - SMALL INTESTINAL OBSTRUCTION [None]
  - HYPONATRAEMIA [None]
